FAERS Safety Report 9879824 (Version 1)
Quarter: 2014Q1

REPORT INFORMATION
  Report Type: Spontaneous
  Country: CH (occurrence: CH)
  Receive Date: 20140206
  Receipt Date: 20140206
  Transmission Date: 20141002
  Serious: Yes (Hospitalization)
  Sender: FDA-Public Use
  Company Number: CH-ABBVIE-14P-151-1197978-00

PATIENT
  Age: 65 Year
  Sex: Male

DRUGS (11)
  1. DEPAKINE CHRONO [Suspect]
     Indication: GRAND MAL CONVULSION
     Route: 048
  2. RAMIPRIL [Suspect]
     Indication: ESSENTIAL HYPERTENSION
     Route: 048
  3. ESIDREX [Suspect]
     Indication: ESSENTIAL HYPERTENSION
     Route: 048
  4. CRESTOR [Suspect]
     Indication: HYPERCHOLESTEROLAEMIA
     Route: 048
  5. JANUMET [Suspect]
     Indication: TYPE 2 DIABETES MELLITUS
     Route: 048
  6. METFIN [Suspect]
     Indication: TYPE 2 DIABETES MELLITUS
     Route: 048
  7. RIVOTRIL [Suspect]
     Indication: GRAND MAL CONVULSION
     Route: 048
  8. ASPIRIN CARDIO [Concomitant]
     Indication: PRODUCT USED FOR UNKNOWN INDICATION
  9. AMOXICILLIN/CLAVULANIC ACID [Concomitant]
     Indication: PRODUCT USED FOR UNKNOWN INDICATION
     Dates: start: 20131108, end: 20131118
  10. YEAST DRIED [Concomitant]
     Indication: PRODUCT USED FOR UNKNOWN INDICATION
     Dates: start: 20131108, end: 20131119
  11. DAFALGAN [Concomitant]
     Indication: PRODUCT USED FOR UNKNOWN INDICATION
     Dates: start: 20131118, end: 20131119

REACTIONS (1)
  - Fall [Recovered/Resolved]
